FAERS Safety Report 21671976 (Version 1)
Quarter: 2022Q4

REPORT INFORMATION
  Report Type: Spontaneous
  Country: US (occurrence: US)
  Receive Date: 20221202
  Receipt Date: 20221202
  Transmission Date: 20230112
  Serious: Yes (Hospitalization, Other)
  Sender: FDA-Public Use
  Company Number: US-STRIDES ARCOLAB LIMITED-2022SP016167

PATIENT
  Age: 25 Year
  Sex: Female

DRUGS (8)
  1. PREDNISOLONE [Suspect]
     Active Substance: PREDNISOLONE
     Indication: Pruritus
     Dosage: UNK
     Route: 065
  2. DOXORUBICIN [Suspect]
     Active Substance: DOXORUBICIN
     Indication: Hodgkin^s disease
     Dosage: UNK, CYCLICAL (ABVD REGIMEN)
     Route: 065
  3. ADRIAMYCIN [Suspect]
     Active Substance: DOXORUBICIN HYDROCHLORIDE
     Indication: Hodgkin^s disease
     Dosage: UNK, CYCLICAL (ABVD REGIMEN)
     Route: 065
  4. BLEOMYCIN [Suspect]
     Active Substance: BLEOMYCIN SULFATE
     Indication: Hodgkin^s disease
     Dosage: UNK, CYCLICAL (ABVD REGIMEN)
     Route: 065
  5. VINCRISTINE [Suspect]
     Active Substance: VINCRISTINE
     Indication: Hodgkin^s disease
     Dosage: UNK, CYCLICAL (ABVD REGIMEN)
     Route: 065
  6. HYDROXYZINE [Concomitant]
     Active Substance: HYDROXYZINE HYDROCHLORIDE
     Indication: Pruritus
     Dosage: UNK
     Route: 065
  7. LORATADINE [Concomitant]
     Active Substance: LORATADINE
     Indication: Pruritus
     Dosage: UNK
     Route: 065
  8. PAROMOMYCIN [Concomitant]
     Active Substance: PAROMOMYCIN
     Indication: Dientamoeba infection
     Dosage: UNK
     Route: 065

REACTIONS (2)
  - Pulmonary embolism [Unknown]
  - Drug ineffective [Unknown]
